FAERS Safety Report 15457837 (Version 2)
Quarter: 2018Q4

REPORT INFORMATION
  Report Type: Report from Study
  Country: RU (occurrence: RU)
  Receive Date: 20181003
  Receipt Date: 20181004
  Transmission Date: 20190204
  Serious: Yes (Other)
  Sender: FDA-Public Use
  Company Number: RU-ASTRAZENECA-2018SF27566

PATIENT
  Age: 55 Year
  Sex: Male
  Weight: 92 kg

DRUGS (7)
  1. BRILINTA [Suspect]
     Active Substance: TICAGRELOR
     Indication: MYOCARDIAL INFARCTION
     Route: 048
     Dates: start: 20170816
  2. NEBIVAL [Concomitant]
  3. OMEPRAZOLE. [Concomitant]
     Active Substance: OMEPRAZOLE
  4. ROSUVASTATIN. [Concomitant]
     Active Substance: ROSUVASTATIN
  5. PRESTARIUM [Concomitant]
     Active Substance: PERINDOPRIL
  6. THROMBO ASS [Concomitant]
     Active Substance: ASPIRIN
  7. BRILINTA [Suspect]
     Active Substance: TICAGRELOR
     Indication: STENT PLACEMENT
     Route: 048
     Dates: start: 20170816

REACTIONS (2)
  - Device occlusion [Not Recovered/Not Resolved]
  - Product use issue [Not Recovered/Not Resolved]
